FAERS Safety Report 9660968 (Version 1)
Quarter: 2013Q4

REPORT INFORMATION
  Report Type: Spontaneous
  Country: US (occurrence: US)
  Receive Date: 20131031
  Receipt Date: 20131031
  Transmission Date: 20140711
  Serious: No
  Sender: FDA-Public Use
  Company Number: US-BAYER-2013-130716

PATIENT
  Age: 48 Year
  Sex: Female
  Weight: 88 kg

DRUGS (4)
  1. BAYER GENUINE ASPIRIN ORIGINAL STRENGTH [Suspect]
     Dosage: UNK
  2. ALEVE CAPLET [Suspect]
     Dosage: 2 DF, PRN
     Route: 048
  3. LYRICA [Concomitant]
  4. MILNACIPRAN [Concomitant]
     Dosage: UNK

REACTIONS (2)
  - Drug hypersensitivity [None]
  - Extra dose administered [None]
